FAERS Safety Report 9982504 (Version 1)
Quarter: 2014Q1

REPORT INFORMATION
  Report Type: Spontaneous
  Country: JP (occurrence: JP)
  Receive Date: 20140307
  Receipt Date: 20140307
  Transmission Date: 20141002
  Serious: Yes (Death)
  Sender: FDA-Public Use
  Company Number: JP-MALLINCKRODT-T201401480

PATIENT
  Age: 68 Year
  Sex: Male
  Weight: 69.2 kg

DRUGS (14)
  1. METHADONE [Suspect]
     Indication: CANCER PAIN
     Dosage: 5 MG (15 MG DAILY DOSE)
     Route: 048
     Dates: start: 20131111, end: 20131117
  2. METHADONE [Suspect]
     Dosage: 10 MG (20 MG DAILY DOSE)
     Route: 048
     Dates: start: 20131118, end: 20131206
  3. OXYNORM [Concomitant]
     Dosage: 10 MG, PRN
     Route: 048
     Dates: start: 20131110, end: 20131206
  4. THYRADIN [Concomitant]
     Dosage: 75 MG, UNK
     Route: 048
     Dates: end: 20131206
  5. ZOPICLONE [Concomitant]
     Dosage: 7.5 MG, UNK
     Route: 048
     Dates: end: 20131206
  6. LOXOPROFEN [Concomitant]
     Dosage: 180 MG, UNK
     Route: 048
     Dates: end: 20131206
  7. REBAMIPIDE [Concomitant]
     Dosage: 300 MG, UNK
     Route: 048
     Dates: end: 20131206
  8. NEXIUM [Concomitant]
     Dosage: 20 MG, UNK
     Route: 048
     Dates: end: 20131206
  9. LYRICA [Concomitant]
     Dosage: 75 MG, UNK
     Route: 048
     Dates: end: 20131206
  10. RINDERON [Concomitant]
     Dosage: 2 MG, UNK
     Route: 048
     Dates: end: 20131206
  11. NOVAMIN [Concomitant]
     Dosage: 15 MG, UNK
     Route: 048
     Dates: end: 20131113
  12. MAGMITT [Concomitant]
     Dosage: 1500 MG, UNK
     Route: 048
     Dates: end: 20131206
  13. WARFARIN [Concomitant]
     Dosage: 2 MG, UNK
     Route: 048
     Dates: end: 20131206
  14. ARTIST [Concomitant]
     Dosage: 20 MG, UNK
     Route: 048
     Dates: end: 20131206

REACTIONS (1)
  - Bladder cancer [Fatal]
